FAERS Safety Report 15769610 (Version 1)
Quarter: 2018Q4

REPORT INFORMATION
  Report Type: Spontaneous
  Country: US (occurrence: US)
  Receive Date: 20181218
  Receipt Date: 20181218
  Transmission Date: 20190205
  Serious: No
  Sender: FDA-Public Use
  Company Number: None

PATIENT

DRUGS (2)
  1. TRAZODONE HYDROCHLORIDE. [Suspect]
     Active Substance: TRAZODONE HYDROCHLORIDE
     Route: 048
  2. TRAMADOL TRAMADOL [Suspect]
     Active Substance: TRAMADOL
     Route: 048

REACTIONS (2)
  - Wrong product administered [None]
  - Product dispensing error [None]
